FAERS Safety Report 15223385 (Version 2)
Quarter: 2018Q3

REPORT INFORMATION
  Report Type: Report from Study
  Country: BR (occurrence: BR)
  Receive Date: 20180731
  Receipt Date: 20180810
  Transmission Date: 20181010
  Serious: Yes (Other)
  Sender: FDA-Public Use
  Company Number: PHHY2017BR092243

PATIENT
  Sex: Female
  Weight: 60 kg

DRUGS (5)
  1. COSENTYX [Suspect]
     Active Substance: SECUKINUMAB
     Dosage: 300 MG, QMO (2 PENS OF 150 MG)
     Route: 065
  2. COSENTYX [Suspect]
     Active Substance: SECUKINUMAB
     Dosage: 150 MG, QMO
     Route: 058
     Dates: start: 20161104
  3. COSENTYX [Suspect]
     Active Substance: SECUKINUMAB
     Indication: ANKYLOSING SPONDYLITIS
     Dosage: 1 DF, EVERY 15 DAYS
     Route: 058
     Dates: start: 201610
  4. COSENTYX [Suspect]
     Active Substance: SECUKINUMAB
     Dosage: 150 MG, QMO
     Route: 065
  5. COSENTYX [Suspect]
     Active Substance: SECUKINUMAB
     Dosage: 150 MG, BIW (EVERY 15 DAYS)
     Route: 058

REACTIONS (6)
  - Musculoskeletal stiffness [Unknown]
  - Ankylosing spondylitis [Unknown]
  - Arthralgia [Unknown]
  - Inappropriate schedule of drug administration [Not Recovered/Not Resolved]
  - Pain [Unknown]
  - Back pain [Unknown]
